FAERS Safety Report 10714351 (Version 3)
Quarter: 2015Q1

REPORT INFORMATION
  Report Type: Spontaneous
  Country: US (occurrence: US)
  Receive Date: 20150115
  Receipt Date: 20150312
  Transmission Date: 20150721
  Serious: Yes (Other)
  Sender: FDA-Public Use
  Company Number: US-ASTELLAS-2014US018400

PATIENT
  Age: 71 Year
  Sex: Female

DRUGS (4)
  1. MYRBETRIQ [Suspect]
     Active Substance: MIRABEGRON
     Route: 065
  2. MYRBETRIQ [Suspect]
     Active Substance: MIRABEGRON
     Indication: URINARY INCONTINENCE
     Route: 065
     Dates: start: 201411
  3. BYETTA [Concomitant]
     Active Substance: EXENATIDE
     Indication: DIABETES MELLITUS
     Dosage: UNK UNK, UNKNOWN FREQ.
     Route: 065
  4. INVOKANA [Concomitant]
     Active Substance: CANAGLIFLOZIN
     Indication: DIABETES MELLITUS
     Dosage: UNK UNK, UNKNOWN FREQ.
     Route: 065

REACTIONS (5)
  - Genital infection fungal [Recovering/Resolving]
  - Ear pain [Recovering/Resolving]
  - Ear infection fungal [Not Recovered/Not Resolved]
  - Arterial disorder [Unknown]
  - Stent placement [Unknown]

NARRATIVE: CASE EVENT DATE: 201411
